FAERS Safety Report 7573014-0 (Version None)
Quarter: 2011Q2

REPORT INFORMATION
  Report Type: 
  Country: None (occurrence: None)
  Receive Date: 20110627
  Receipt Date: 20110617
  Transmission Date: 20111010
  Serious: Yes (Hospitalization)
  Sender: FDA-Public Use
  Company Number: US-ASTELLAS-2011US002669

PATIENT
  Sex: Male
  Weight: 12 kg

DRUGS (2)
  1. MICAFUNGIN INJECTION [Suspect]
     Indication: CANDIDIASIS
     Dosage: UNK
     Route: 042
     Dates: start: 20110507, end: 20110517
  2. MYCAMINE [Suspect]
     Indication: CANDIDIASIS
     Dosage: 50 MG, QID
     Route: 042
     Dates: start: 20110518, end: 20110530

REACTIONS (1)
  - DEVICE RELATED INFECTION [None]
